FAERS Safety Report 6261246-3 (Version None)
Quarter: 2009Q3

REPORT INFORMATION
  Report Type: 
  Country: None (occurrence: None)
  Receive Date: 20090709
  Receipt Date: 20080919
  Transmission Date: 20100115
  Serious: No
  Sender: FDA-Public Use
  Company Number: US-KINGPHARMUSA00001-K200801115

PATIENT
  Age: 56 Year
  Sex: Female

DRUGS (1)
  1. LEVOXYL [Suspect]
     Indication: AUTOIMMUNE THYROIDITIS
     Dosage: 100 MCG, QD
     Route: 048
     Dates: start: 20060101

REACTIONS (7)
  - ARTHROPATHY [None]
  - EYE SWELLING [None]
  - FLUSHING [None]
  - JOINT SWELLING [None]
  - MUSCULOSKELETAL STIFFNESS [None]
  - SNORING [None]
  - SWELLING FACE [None]
